FAERS Safety Report 11800153 (Version 4)
Quarter: 2016Q1

REPORT INFORMATION
  Report Type: Report from Study
  Country: AT (occurrence: AT)
  Receive Date: 20151203
  Receipt Date: 20160111
  Transmission Date: 20160525
  Serious: No
  Sender: FDA-Public Use
  Company Number: AT-ABBVIE-15P-009-1507291-00

PATIENT
  Age: 77 Year
  Sex: Female
  Weight: 65 kg

DRUGS (8)
  1. MODERIBA [Suspect]
     Active Substance: RIBAVIRIN
     Indication: HEPATITIS C
     Route: 065
  2. EXVIERA [Suspect]
     Active Substance: DASABUVIR
     Indication: CHRONIC HEPATITIS C
     Dosage: 2-0-0
     Route: 048
     Dates: start: 20151112, end: 20151120
  3. CLOPIDOGREL [Concomitant]
     Active Substance: CLOPIDOGREL BISULFATE
     Indication: ANGINA PECTORIS
  4. VIEKIRAX [Suspect]
     Active Substance: OMBITASVIR\PARITAPREVIR\RITONAVIR
     Indication: CHRONIC HEPATITIS C
     Dosage: 1-0-1
     Route: 048
     Dates: start: 20151112, end: 20151120
  5. DANCOR [Concomitant]
     Active Substance: NICORANDIL
     Indication: ANGINA PECTORIS
  6. SIMVASTATIN. [Concomitant]
     Active Substance: SIMVASTATIN
     Indication: LIPIDS ABNORMAL
  7. DILTIAZEM [Concomitant]
     Active Substance: DILTIAZEM
     Indication: HYPERTENSION
  8. OXIS [Concomitant]
     Active Substance: FORMOTEROL FUMARATE
     Indication: PRODUCT USED FOR UNKNOWN INDICATION

REACTIONS (3)
  - Drug dose omission [Unknown]
  - Nausea [Unknown]
  - Asthenia [Unknown]

NARRATIVE: CASE EVENT DATE: 20151114
